FAERS Safety Report 8646894 (Version 2)
Quarter: 2013Q4

REPORT INFORMATION
  Report Type: Spontaneous
  Country: US (occurrence: US)
  Receive Date: 20120703
  Receipt Date: 20131112
  Transmission Date: 20140711
  Serious: No
  Sender: FDA-Public Use
  Company Number: US-PFIZER INC-2012154745

PATIENT
  Age: 84 Year
  Sex: Female

DRUGS (5)
  1. NAPROXEN SODIUM [Suspect]
     Dosage: UNK
  2. MINOCIN [Suspect]
     Dosage: UNK
  3. ALEVE [Suspect]
     Dosage: UNK
  4. COLCHICINE [Suspect]
     Dosage: UNK
  5. KEFLEX [Suspect]
     Dosage: UNK

REACTIONS (1)
  - Drug hypersensitivity [Unknown]
